FAERS Safety Report 4474242-3 (Version None)
Quarter: 2004Q4

REPORT INFORMATION
  Report Type: 
  Country: None (occurrence: None)
  Receive Date: 20041012
  Receipt Date: 20041001
  Transmission Date: 20050328
  Serious: Yes (Hospitalization)
  Sender: FDA-Public Use
  Company Number: 2004-120831-NL

PATIENT
  Age: 46 Year
  Sex: Female

DRUGS (5)
  1. VECURONIUM [Suspect]
     Indication: INDUCTION OF ANAESTHESIA
  2. PROPOFOL [Suspect]
     Indication: INDUCTION OF ANAESTHESIA
  3. FENTANYL [Suspect]
     Indication: INDUCTION OF ANAESTHESIA
  4. NITROUS OXIDE W/ OXYGEN [Suspect]
  5. SEVOFLURANE [Suspect]

REACTIONS (6)
  - APNOEA [None]
  - DYSTROPHIA MYOTONICA [None]
  - HYPOVENTILATION [None]
  - POST PROCEDURAL COMPLICATION [None]
  - RESPIRATION ABNORMAL [None]
  - THERAPY NON-RESPONDER [None]
